FAERS Safety Report 4892808-3 (Version None)
Quarter: 2005Q4

REPORT INFORMATION
  Report Type: 
  Country: None (occurrence: None)
  Receive Date: 20051220
  Receipt Date: 20051004
  Transmission Date: 20060501
  Serious: No
  Sender: FDA-Public Use
  Company Number: 420185

PATIENT
  Age: 80 Year
  Sex: Female
  Weight: 59 kg

DRUGS (5)
  1. BONIVA [Suspect]
     Indication: OSTEOPOROSIS
     Dosage: 150 MG 1 PER MONTH ORAL
     Route: 048
     Dates: start: 20050515, end: 20050717
  2. ACTONEL [Suspect]
     Indication: OSTEOPOROSIS
     Dosage: 150 MG 1 PER MONTH ORAL
     Route: 048
     Dates: start: 20050615, end: 20050615
  3. FOSAMAX [Suspect]
     Indication: OSTEOPOROSIS
     Dosage: 70 MG 1 PER WEEK ORAL
     Route: 048
     Dates: start: 20041116, end: 20050515
  4. CALTRATE 600 + D (CALCIUM/CHOLECALCIFEROL) [Concomitant]
  5. LISINOPRIL [Concomitant]

REACTIONS (5)
  - DIARRHOEA [None]
  - DIZZINESS [None]
  - RASH [None]
  - VISION BLURRED [None]
  - VOMITING [None]
